FAERS Safety Report 20892312 (Version 4)
Quarter: 2022Q3

REPORT INFORMATION
  Report Type: Report from Study
  Country: US (occurrence: US)
  Receive Date: 20220530
  Receipt Date: 20220913
  Transmission Date: 20221026
  Serious: Yes (Other)
  Sender: FDA-Public Use
  Company Number: US-ABBVIE-22K-163-4415168-00

PATIENT
  Age: 69 Year
  Sex: Female

DRUGS (3)
  1. RINVOQ [Suspect]
     Active Substance: UPADACITINIB
     Indication: Rheumatoid arthritis
     Dosage: EXTENDED RELEASE
     Route: 048
     Dates: start: 20210617
  2. RINVOQ [Suspect]
     Active Substance: UPADACITINIB
     Dosage: 1 TABLET BY MOUTH ONCE A DAY.
     Route: 048
  3. RINVOQ [Suspect]
     Active Substance: UPADACITINIB
     Dosage: EXTENDED RELEASE
     Route: 048

REACTIONS (6)
  - Pulmonary mass [Unknown]
  - Skin cancer [Recovering/Resolving]
  - Lung neoplasm malignant [Unknown]
  - Lymphadenectomy [Unknown]
  - Dyspnoea [Unknown]
  - Lung disorder [Unknown]

NARRATIVE: CASE EVENT DATE: 20220701
